FAERS Safety Report 25255131 (Version 3)
Quarter: 2025Q3

REPORT INFORMATION
  Report Type: Report from Study
  Country: US (occurrence: US)
  Receive Date: 20250430
  Receipt Date: 20250916
  Transmission Date: 20251020
  Serious: Yes (Other)
  Sender: JAZZ
  Company Number: US-JAZZ PHARMACEUTICALS-2025-US-010754

PATIENT
  Age: 30 Year
  Sex: Female

DRUGS (8)
  1. XYWAV [Suspect]
     Active Substance: CALCIUM OXYBATE\MAGNESIUM OXYBATE\POTASSIUM OXYBATE\SODIUM OXYBATE
     Indication: Hypersomnia
     Dosage: 6 GRAM, QD
     Dates: start: 20250304
  2. MODAFINIL [Concomitant]
     Active Substance: MODAFINIL
     Indication: Hypersensitivity
  3. MODAFINIL [Concomitant]
     Active Substance: MODAFINIL
     Indication: Hypersomnia
  4. TOPIRAMATE [Concomitant]
     Active Substance: TOPIRAMATE
     Indication: Hypersensitivity
  5. OLMESARTAN [Concomitant]
     Active Substance: OLMESARTAN
     Indication: Hypersensitivity
  6. ZYRTEC [Concomitant]
     Active Substance: CETIRIZINE HYDROCHLORIDE
     Indication: Hypersensitivity
  7. ARIPIPRAZOLE [Concomitant]
     Active Substance: ARIPIPRAZOLE
     Indication: Product used for unknown indication
  8. WELLBUTRIN [Concomitant]
     Active Substance: BUPROPION HYDROCHLORIDE
     Indication: Product used for unknown indication

REACTIONS (2)
  - Acoustic neuroma [Not Recovered/Not Resolved]
  - Aneurysm [Unknown]

NARRATIVE: CASE EVENT DATE: 20250327
